FAERS Safety Report 7553855-6 (Version None)
Quarter: 2011Q2

REPORT INFORMATION
  Report Type: 
  Country: None (occurrence: None)
  Receive Date: 20110617
  Receipt Date: 20110614
  Transmission Date: 20111010
  Serious: Yes (Other)
  Sender: FDA-Public Use
  Company Number: US-BRISTOL-MYERS SQUIBB COMPANY-15834237

PATIENT
  Sex: Male

DRUGS (1)
  1. METFORMIN HCL + GLIPIZIDE [Suspect]
     Dosage: TABS

REACTIONS (1)
  - RENAL DISORDER [None]
